FAERS Safety Report 9002345 (Version 1)
Quarter: 2013Q1

REPORT INFORMATION
  Report Type: Spontaneous
  Country: US (occurrence: US)
  Receive Date: 20130107
  Receipt Date: 20130107
  Transmission Date: 20140127
  Serious: Yes (Death)
  Sender: FDA-Public Use
  Company Number: PHEH2013US000594

PATIENT
  Sex: Female
  Weight: 56.69 kg

DRUGS (7)
  1. RECLAST [Suspect]
     Indication: OSTEOPOROSIS
     Dosage: 5 MG, UNK
     Route: 042
     Dates: start: 20080310
  2. RECLAST [Suspect]
     Dosage: 5 MG, UNK
     Route: 042
  3. RECLAST [Suspect]
     Dosage: 5 MG, UNK
     Route: 042
  4. RECLAST [Suspect]
     Dosage: 5 MG, UNK
     Route: 042
     Dates: start: 20111214
  5. AMLODIPINE [Concomitant]
     Dosage: 5 MG, DAILY
  6. NITROFURANTOIN [Concomitant]
     Dosage: 0.5 MG, DAILY
  7. ESTRACE [Concomitant]
     Dosage: 50 MG, DAILY

REACTIONS (1)
  - Death [Fatal]
